FAERS Safety Report 15657689 (Version 2)
Quarter: 2019Q4

REPORT INFORMATION
  Report Type: Spontaneous
  Country: US (occurrence: US)
  Receive Date: 20181126
  Receipt Date: 20191120
  Transmission Date: 20200122
  Serious: No
  Sender: FDA-Public Use
  Company Number: US-NOVOPROD-623347

PATIENT
  Age: 57 Year
  Sex: Female

DRUGS (1)
  1. NOVOLOG MIX 70/30 [Suspect]
     Active Substance: INSULIN ASPART
     Indication: TYPE 1 DIABETES MELLITUS
     Dosage: 18 UNITS AM 15 UNITS PM
     Route: 058
     Dates: start: 2010

REACTIONS (9)
  - Hypertension [Not Recovered/Not Resolved]
  - Product quality issue [Unknown]
  - Fatigue [Unknown]
  - Feeling abnormal [Unknown]
  - Faeces soft [Not Recovered/Not Resolved]
  - Dizziness [Not Recovered/Not Resolved]
  - Photophobia [Not Recovered/Not Resolved]
  - Blood glucose increased [Recovered/Resolved]
  - Rash pruritic [Not Recovered/Not Resolved]

NARRATIVE: CASE EVENT DATE: 201809
